FAERS Safety Report 21388775 (Version 1)
Quarter: 2022Q3

REPORT INFORMATION
  Report Type: Spontaneous
  Country: US (occurrence: None)
  Receive Date: 20220927
  Receipt Date: 20220927
  Transmission Date: 20221027
  Serious: No
  Sender: FDA-Public Use
  Company Number: None

PATIENT
  Age: 65 Year
  Sex: Female
  Weight: 70.22 kg

DRUGS (12)
  1. CAPECITABINE [Suspect]
     Active Substance: CAPECITABINE
     Indication: Breast cancer female
     Dosage: FREQUENCY : TWICE A DAY;?
     Route: 048
     Dates: start: 20220623, end: 20220927
  2. ASPIRIN [Concomitant]
     Active Substance: ASPIRIN
  3. AVALIDE [Concomitant]
     Active Substance: HYDROCHLOROTHIAZIDE\IRBESARTAN
  4. BENADRYL [Concomitant]
     Active Substance: DIPHENHYDRAMINE HYDROCHLORIDE
  5. BIOTIN [Concomitant]
     Active Substance: BIOTIN
  6. MAGNESIUM [Concomitant]
     Active Substance: MAGNESIUM
  7. ENULOSE [Concomitant]
     Active Substance: LACTULOSE
  8. METOPROLOL [Concomitant]
     Active Substance: METOPROLOL
  9. PRAVACHOL [Concomitant]
     Active Substance: PRAVASTATIN SODIUM
  10. PREDNISONE [Concomitant]
     Active Substance: PREDNISONE
  11. RIZATRIPTAN [Concomitant]
     Active Substance: RIZATRIPTAN
  12. SENOKOT [Concomitant]
     Active Substance: SENNOSIDES

REACTIONS (1)
  - Palmar-plantar erythrodysaesthesia syndrome [None]
